FAERS Safety Report 17597894 (Version 1)
Quarter: 2020Q1

REPORT INFORMATION
  Report Type: Spontaneous
  Country: US (occurrence: US)
  Receive Date: 20200327
  Receipt Date: 20200327
  Transmission Date: 20200409
  Serious: Yes (Other)
  Sender: FDA-Public Use
  Company Number: None

PATIENT
  Sex: Male
  Weight: 87 kg

DRUGS (2)
  1. HEPARIN SODIUM INJECTION, USP [Suspect]
     Active Substance: HEPARIN SODIUM
     Indication: ANTICOAGULANT THERAPY
     Dosage: ?          OTHER FREQUENCY:ONCE;?
     Route: 040
  2. HEPARIN SODIUM INJECTION, IUP [Suspect]
     Active Substance: HEPARIN SODIUM
     Indication: ANTICOAGULANT THERAPY
     Dosage: ?          OTHER FREQUENCY:X1 INTRAOP;?
     Route: 040

REACTIONS (2)
  - Coagulation time prolonged [None]
  - Therapeutic response decreased [None]
